FAERS Safety Report 17930998 (Version 4)
Quarter: 2020Q4

REPORT INFORMATION
  Report Type: Report from Study
  Country: US (occurrence: US)
  Receive Date: 20200623
  Receipt Date: 20201019
  Transmission Date: 20210113
  Serious: Yes (Other)
  Sender: FDA-Public Use
  Company Number: US-MYLANLABS-2020M1054477

PATIENT
  Age: 49 Year
  Sex: Female
  Weight: 81.63 kg

DRUGS (4)
  1. GLATIRAMER ACETATE INJECTION [Suspect]
     Active Substance: GLATIRAMER ACETATE
     Indication: RELAPSING-REMITTING MULTIPLE SCLEROSIS
     Dosage: 20 MILLIGRAM, QD
     Route: 058
     Dates: start: 20200528
  2. WHISPERJECT? AUTOINJECTOR [Suspect]
     Active Substance: DEVICE
     Indication: MULTIPLE SCLEROSIS
     Dosage: UNK
  3. GLATIRAMER ACETATE INJECTION [Suspect]
     Active Substance: GLATIRAMER ACETATE
     Indication: MULTIPLE SCLEROSIS
     Dosage: 20 MILLIGRAM, QD
     Route: 058
  4. GLATIRAMER ACETATE INJECTION [Suspect]
     Active Substance: GLATIRAMER ACETATE
     Dosage: 20 MILLIGRAM, QD
     Route: 058

REACTIONS (16)
  - Pain [Unknown]
  - Weight increased [Unknown]
  - Neuralgia [Unknown]
  - Product use issue [Unknown]
  - Swelling [Unknown]
  - Paraesthesia [Unknown]
  - Injection site mass [Not Recovered/Not Resolved]
  - Injection site pruritus [Not Recovered/Not Resolved]
  - Muscle spasms [Unknown]
  - Hypoaesthesia [Unknown]
  - Injection site pain [Recovering/Resolving]
  - Injection site erythema [Not Recovered/Not Resolved]
  - Anxiety [Unknown]
  - Product quality issue [Unknown]
  - Multiple sclerosis relapse [Unknown]
  - Device issue [Unknown]

NARRATIVE: CASE EVENT DATE: 20200529
